FAERS Safety Report 4639311-3 (Version None)
Quarter: 2005Q2

REPORT INFORMATION
  Report Type: 
  Country: None (occurrence: None)
  Receive Date: 20050419
  Receipt Date: 20030411
  Transmission Date: 20051028
  Serious: Yes (Death)
  Sender: FDA-Public Use
  Company Number: A05-027

PATIENT
  Age: 16 Year
  Sex: Female

DRUGS (1)
  1. ALLERGENIC EXTRACTS [Suspect]
     Dosage: SUB CU
     Route: 058

REACTIONS (1)
  - UNEVALUABLE EVENT [None]
